FAERS Safety Report 16645396 (Version 1)
Quarter: 2019Q3

REPORT INFORMATION
  Report Type: Spontaneous
  Country: US (occurrence: US)
  Receive Date: 20190729
  Receipt Date: 20190729
  Transmission Date: 20191004
  Serious: No
  Sender: FDA-Public Use
  Company Number: US-AMGEN-USASP2019117870

PATIENT
  Age: 61 Year
  Sex: Male

DRUGS (2)
  1. NEULASTA [Suspect]
     Active Substance: PEGFILGRASTIM
     Indication: NEUTROPENIA
     Dosage: UNK UNK, Q3WK (AFTER CHEMO)
     Route: 065
     Dates: start: 20190530
  2. NEUPOGEN [Suspect]
     Active Substance: FILGRASTIM
     Indication: NEUTROPENIA
     Dosage: UNK (4 DOSES)
     Route: 065
     Dates: start: 20190507

REACTIONS (1)
  - Splenomegaly [Unknown]

NARRATIVE: CASE EVENT DATE: 2019
